FAERS Safety Report 10607341 (Version 1)
Quarter: 2014Q4

REPORT INFORMATION
  Report Type: Spontaneous
  Country: US (occurrence: None)
  Receive Date: 20141124
  Receipt Date: 20141124
  Transmission Date: 20150529
  Serious: Yes (Hospitalization)
  Sender: FDA-Public Use
  Company Number: None

PATIENT
  Age: 74 Year
  Sex: Female
  Weight: 95.5 kg

DRUGS (17)
  1. LIPITOR [Concomitant]
     Active Substance: ATORVASTATIN CALCIUM
  2. NOVOLOG MIX 70/30 [Suspect]
     Active Substance: INSULIN ASPART
     Indication: DIABETES MELLITUS
     Dosage: 25 UNITS AC BRKFST SQ?
     Route: 058
  3. CELEXA [Concomitant]
     Active Substance: CITALOPRAM HYDROBROMIDE
  4. ISOSORBIDE [Concomitant]
     Active Substance: ISOSORBIDE
  5. HUMALOG [Suspect]
     Active Substance: INSULIN LISPRO
     Indication: DIABETES MELLITUS
     Dosage: 2 UNITS AC SUPPER SQ?
     Route: 058
  6. FERROUS SULFATE [Concomitant]
     Active Substance: FERROUS SULFATE\FERROUS SULFATE, DRIED
  7. CARVEDILOL. [Concomitant]
     Active Substance: CARVEDILOL
  8. OXYCODONE [Concomitant]
     Active Substance: OXYCODONE
  9. TYLENOL [Concomitant]
     Active Substance: ACETAMINOPHEN
  10. COUMADIN [Concomitant]
     Active Substance: WARFARIN SODIUM
  11. VITAMIN C [Concomitant]
     Active Substance: ASCORBIC ACID
  12. LIDODERM [Concomitant]
     Active Substance: LIDOCAINE
  13. NEURONTIN [Concomitant]
     Active Substance: GABAPENTIN
  14. SENOKOT [Concomitant]
     Active Substance: SENNOSIDES
  15. GABAPENTIN. [Concomitant]
     Active Substance: GABAPENTIN
  16. VITAMIN D [Concomitant]
     Active Substance: CHOLECALCIFEROL
  17. LASIX [Concomitant]
     Active Substance: FUROSEMIDE

REACTIONS (5)
  - Hypoglycaemia [None]
  - Hyperhidrosis [None]
  - Urosepsis [None]
  - Lethargy [None]
  - Urinary tract infection [None]

NARRATIVE: CASE EVENT DATE: 20140501
